FAERS Safety Report 16970445 (Version 1)
Quarter: 2019Q4

REPORT INFORMATION
  Report Type: Spontaneous
  Country: US (occurrence: US)
  Receive Date: 20190911
  Receipt Date: 20190911
  Transmission Date: 20200122
  Serious: Yes (Hospitalization)
  Sender: FDA-Public Use
  Company Number: None

PATIENT
  Age: 48 Year
  Sex: Female

DRUGS (17)
  1. LOSARTAN. [Concomitant]
     Active Substance: LOSARTAN
  2. RRANITIDINE [Concomitant]
  3. ONDANSETRON [Concomitant]
     Active Substance: ONDANSETRON
  4. SODIUM BICARBONATE. [Concomitant]
     Active Substance: SODIUM BICARBONATE
  5. TACROLIMUS. [Concomitant]
     Active Substance: TACROLIMUS
  6. LINZESS [Concomitant]
     Active Substance: LINACLOTIDE
  7. MIRTAZAPINE. [Concomitant]
     Active Substance: MIRTAZAPINE
  8. MYCOPHENOLATE 250MG [Suspect]
     Active Substance: MYCOPHENOLIC ACID
     Indication: ORGAN TRANSPLANT
     Route: 048
     Dates: start: 20170531, end: 20190812
  9. OMEPRAZOLE. [Concomitant]
     Active Substance: OMEPRAZOLE
  10. ELIQUIS [Concomitant]
     Active Substance: APIXABAN
  11. MYCOPHENOLATE 500MG [Suspect]
     Active Substance: MYCOPHENOLIC ACID
     Indication: TRANSPLANT
     Route: 048
     Dates: start: 20170531
  12. HYDROCO/APAP [Concomitant]
     Active Substance: ACETAMINOPHEN\HYDROCODONE
  13. MAGNESIUM-OX [Concomitant]
  14. ALPRAZOLAM. [Concomitant]
     Active Substance: ALPRAZOLAM
  15. MECLIZINE [Concomitant]
     Active Substance: MECLIZINE HYDROCHLORIDE
  16. MULTIVITAMIN [Concomitant]
     Active Substance: VITAMINS
  17. HYDROMORPHONE [Concomitant]
     Active Substance: HYDROMORPHONE

REACTIONS (1)
  - Abdominal pain [None]

NARRATIVE: CASE EVENT DATE: 20190908
